FAERS Safety Report 22301992 (Version 1)
Quarter: 2023Q2

REPORT INFORMATION
  Report Type: Spontaneous
  Country: GB (occurrence: None)
  Receive Date: 20230510
  Receipt Date: 20230510
  Transmission Date: 20230721
  Serious: Yes (Disabling, Other)
  Sender: FDA-Public Use
  Company Number: 2023A107137

PATIENT
  Age: 65 Year
  Sex: Female
  Weight: 61 kg

DRUGS (2)
  1. QUETIAPINE [Suspect]
     Active Substance: QUETIAPINE
     Indication: Bipolar disorder
     Dosage: 25MG TWICE A DAY THEN SLOW RELEASE 50MG; ;
     Dates: start: 20221006, end: 20230116
  2. FEXOFENODINE [Concomitant]
     Indication: Product used for unknown indication

REACTIONS (7)
  - Headache [Recovered/Resolved]
  - Diplopia [Unknown]
  - Feeling abnormal [Unknown]
  - Nausea [Unknown]
  - Eye pain [Unknown]
  - Rash [Unknown]
  - Medication error [Unknown]

NARRATIVE: CASE EVENT DATE: 20230108
